FAERS Safety Report 7450653-9 (Version None)
Quarter: 2011Q2

REPORT INFORMATION
  Report Type: 
  Country: None (occurrence: None)
  Receive Date: 20110429
  Receipt Date: 20110429
  Transmission Date: 20111010
  Serious: Yes (Life-Threatening, Disabling)
  Sender: FDA-Public Use
  Company Number: None

PATIENT
  Age: 5 Year
  Sex: Male
  Weight: 22.6799 kg

DRUGS (1)
  1. NIMOTUZUMAB-CAME FROM CUBA [Suspect]
     Indication: GLIOMA
     Dosage: 3 DOSES
     Dates: start: 20090522

REACTIONS (2)
  - MOVEMENT DISORDER [None]
  - FOOT DEFORMITY [None]
